FAERS Safety Report 9279421 (Version 2)
Quarter: 2014Q2

REPORT INFORMATION
  Report Type: Spontaneous
  Country: US (occurrence: US)
  Receive Date: 20130508
  Receipt Date: 20140417
  Transmission Date: 20141212
  Serious: Yes (Hospitalization, Other)
  Sender: FDA-Public Use
  Company Number: US-009507513-1305USA001000

PATIENT
  Sex: Female

DRUGS (3)
  1. FOSAMAX [Suspect]
     Dosage: UNK
     Route: 048
     Dates: start: 2003, end: 2011
  2. FOSAMAX PLUS D [Suspect]
     Route: 048
  3. ALENDRONATE SODIUM [Suspect]

REACTIONS (8)
  - Femur fracture [Unknown]
  - Surgery [Unknown]
  - Hip arthroplasty [Unknown]
  - Adverse event [Unknown]
  - Adverse event [Unknown]
  - Adverse event [Unknown]
  - Ulna fracture [Unknown]
  - Road traffic accident [Unknown]
